FAERS Safety Report 6051858-4 (Version None)
Quarter: 2009Q1

REPORT INFORMATION
  Report Type: 
  Country: None (occurrence: None)
  Receive Date: 20090126
  Receipt Date: 20090113
  Transmission Date: 20090719
  Serious: Yes (Death)
  Sender: FDA-Public Use
  Company Number: JP-ROCHE-609082

PATIENT
  Age: 50 Year
  Sex: Male

DRUGS (4)
  1. PEGASYS [Suspect]
     Indication: HEPATITIS C
     Route: 058
     Dates: start: 20081125, end: 20081209
  2. COPEGUS [Suspect]
     Indication: HEPATITIS C
     Route: 048
     Dates: start: 20081125, end: 20081209
  3. REMICADE [Concomitant]
     Dosage: DRUG: REMICADE (INFLIXIMAB (GENETICAL RECOMBINATION)
     Route: 041
  4. PLAVIX [Concomitant]
     Dosage: DRUG: PLAVIX (CLOPIDOGREL SULFATE)
     Route: 048

REACTIONS (1)
  - CEREBRAL INFARCTION [None]
